FAERS Safety Report 4647752-3 (Version None)
Quarter: 2005Q2

REPORT INFORMATION
  Report Type: 
  Country: None (occurrence: None)
  Receive Date: 20050426
  Receipt Date: 20050405
  Transmission Date: 20051028
  Serious: Yes (Congenital Anomaly)
  Sender: FDA-Public Use
  Company Number: B0377744A

PATIENT
  Sex: 0

DRUGS (1)
  1. ZANTAC [Suspect]
     Dosage: TRANSPLACENTARY
     Route: 064

REACTIONS (2)
  - DRUG EXPOSURE DURING PREGNANCY [None]
  - SYNDACTYLY [None]
